FAERS Safety Report 18898379 (Version 1)
Quarter: 2021Q1

REPORT INFORMATION
  Report Type: Spontaneous
  Country: US (occurrence: US)
  Receive Date: 20210216
  Receipt Date: 20210216
  Transmission Date: 20210420
  Serious: No
  Sender: FDA-Public Use
  Company Number: US-CELLTRION INC.-2021US001630

PATIENT

DRUGS (2)
  1. TRUXIMA [Suspect]
     Active Substance: RITUXIMAB-ABBS
     Indication: ANAEMIA OF CHRONIC DISEASE
  2. TRUXIMA [Suspect]
     Active Substance: RITUXIMAB-ABBS
     Indication: NEUROENDOCRINE TUMOUR
     Dosage: 1000 MG, EVERY OTHER WEEK
     Dates: start: 20210201

REACTIONS (1)
  - Off label use [Unknown]
